FAERS Safety Report 7082690-0 (Version None)
Quarter: 2010Q4

REPORT INFORMATION
  Report Type: 
  Country: None (occurrence: None)
  Receive Date: 20101104
  Receipt Date: 20101026
  Transmission Date: 20110411
  Serious: Yes (Other)
  Sender: FDA-Public Use
  Company Number: US-ASTRAZENECA-2010SE41462

PATIENT
  Age: 67 Year
  Sex: Female
  Weight: 68.9 kg

DRUGS (7)
  1. CRESTOR [Suspect]
     Indication: HYPERLIPIDAEMIA
     Route: 048
     Dates: start: 20090430
  2. CRESTOR [Suspect]
     Route: 048
     Dates: start: 20100505, end: 20100729
  3. NEXIUM [Concomitant]
     Route: 048
  4. NIACIN [Concomitant]
  5. ACTONEL [Concomitant]
  6. LEVOXYL [Concomitant]
     Indication: HYPOTHYROIDISM
     Dosage: 0.88 TARGET QUIT DATE
     Route: 048
  7. FEMARA [Concomitant]

REACTIONS (7)
  - BLOOD CHOLESTEROL INCREASED [None]
  - BLOOD TRIGLYCERIDES INCREASED [None]
  - DRUG INEFFECTIVE [None]
  - HIGH DENSITY LIPOPROTEIN INCREASED [None]
  - LOW DENSITY LIPOPROTEIN INCREASED [None]
  - THYROID FUNCTION TEST ABNORMAL [None]
  - VERY LOW DENSITY LIPOPROTEIN INCREASED [None]
